FAERS Safety Report 6196629-3 (Version None)
Quarter: 2009Q2

REPORT INFORMATION
  Report Type: 
  Country: None (occurrence: None)
  Receive Date: 20090520
  Receipt Date: 20090513
  Transmission Date: 20091009
  Serious: Yes (Hospitalization)
  Sender: FDA-Public Use
  Company Number: A0744124A

PATIENT
  Age: 8 Year
  Sex: Male

DRUGS (6)
  1. LAMOTRIGINE [Suspect]
     Indication: CONVULSION
     Dosage: 375MG PER DAY
     Route: 048
  2. BENICAR HCT [Suspect]
     Indication: DYSKINESIA
     Dosage: .5TAB PER DAY
     Route: 048
     Dates: start: 20071116, end: 20071201
  3. STRATTERA [Suspect]
     Indication: ATTENTION DEFICIT/HYPERACTIVITY DISORDER
     Dosage: 10MG PER DAY
     Route: 048
     Dates: start: 20060101, end: 20060101
  4. LAMICTAL [Suspect]
     Indication: CONVULSION
     Dosage: 100MG TWICE PER DAY
     Dates: start: 19980101
  5. TENEX [Concomitant]
  6. CLONIDINE [Concomitant]

REACTIONS (28)
  - ABNORMAL BEHAVIOUR [None]
  - ANGER [None]
  - ANTICONVULSANT DRUG LEVEL DECREASED [None]
  - BLEPHAROSPASM [None]
  - CONDITION AGGRAVATED [None]
  - CONVULSION [None]
  - DECREASED INTEREST [None]
  - DEPRESSED MOOD [None]
  - DISORIENTATION [None]
  - DISTURBANCE IN ATTENTION [None]
  - DRUG LEVEL DECREASED [None]
  - DYSKINESIA [None]
  - EYE ROLLING [None]
  - FATIGUE [None]
  - FEELING ABNORMAL [None]
  - FEELING OF RELAXATION [None]
  - GRAND MAL CONVULSION [None]
  - HEAD INJURY [None]
  - HEADACHE [None]
  - RESPIRATORY ARREST [None]
  - SOCIAL AVOIDANT BEHAVIOUR [None]
  - SOMNOLENCE [None]
  - STARING [None]
  - SUICIDAL IDEATION [None]
  - THERAPEUTIC RESPONSE UNEXPECTED WITH DRUG SUBSTITUTION [None]
  - TIC [None]
  - VOMITING [None]
  - WEIGHT INCREASED [None]
